FAERS Safety Report 7539786-6 (Version None)
Quarter: 2011Q2

REPORT INFORMATION
  Report Type: 
  Country: None (occurrence: None)
  Receive Date: 20110610
  Receipt Date: 20110531
  Transmission Date: 20111010
  Serious: Yes (Other)
  Sender: FDA-Public Use
  Company Number: US-MYLANLABS-2011S1010045

PATIENT
  Age: 63 Year
  Sex: Female
  Weight: 72.58 kg

DRUGS (8)
  1. LEVOTHYROXINE SODIUM [Suspect]
     Indication: HYPOTHYROIDISM
     Route: 048
     Dates: start: 20110101, end: 20110101
  2. VITAMIN B-12 [Concomitant]
     Dosage: TAKEN FOR OVER 8 YEARS WITH NO PROBLEM
     Route: 030
  3. MULTI-VITAMIN [Concomitant]
     Dosage: TAKEN FOR OVER 8 YEARS WITH NO PROBLEM
  4. LEVOTHYROXINE SODIUM [Suspect]
     Route: 048
     Dates: start: 20110101, end: 20110101
  5. FOLIC ACID [Concomitant]
     Dosage: TAKEN FOR OVER 8 YEARS WITH NO PROBLEM
  6. DIOVAN [Concomitant]
     Indication: BLOOD PRESSURE
     Dosage: TAKEN FOR YEARS
  7. VITAMIN D [Concomitant]
     Dosage: TAKEN FOR OVER 8 YEARS WITH NO PROBLEM
  8. CO Q-10 [Concomitant]
     Dosage: TAKEN FOR OVER 8 YEARS WITH NO PROBLEM

REACTIONS (7)
  - CHAPPED LIPS [None]
  - ANGIOEDEMA [None]
  - REACTION TO DRUG EXCIPIENTS [None]
  - AGEUSIA [None]
  - DRY MOUTH [None]
  - MOUTH HAEMORRHAGE [None]
  - LIP HAEMORRHAGE [None]
